FAERS Safety Report 10697629 (Version 2)
Quarter: 2015Q1

REPORT INFORMATION
  Report Type: Spontaneous
  Country: AU (occurrence: AU)
  Receive Date: 20150108
  Receipt Date: 20150123
  Transmission Date: 20150721
  Serious: Yes (Other)
  Sender: FDA-Public Use
  Company Number: AU-APOTEX-2015AP005019

PATIENT
  Age: 68 Year
  Sex: Female

DRUGS (2)
  1. DRONEDARONE [Suspect]
     Active Substance: DRONEDARONE
     Indication: PRODUCT USED FOR UNKNOWN INDICATION
     Dosage: UNK
     Route: 048
  2. AMIODARONE [Suspect]
     Active Substance: AMIODARONE
     Indication: PRODUCT USED FOR UNKNOWN INDICATION
     Dosage: UNK
     Route: 065

REACTIONS (7)
  - Thyroid disorder [Unknown]
  - Product label issue [Unknown]
  - Sleep disorder [Unknown]
  - Retinal vein thrombosis [Unknown]
  - Visual impairment [Unknown]
  - Atrial fibrillation [Unknown]
  - Agitation [Unknown]
